FAERS Safety Report 24004076 (Version 1)
Quarter: 2024Q2

REPORT INFORMATION
  Report Type: Spontaneous
  Country: US (occurrence: US)
  Receive Date: 20240624
  Receipt Date: 20240624
  Transmission Date: 20240716
  Serious: No
  Sender: FDA-Public Use
  Company Number: US-REVANCE THERAPEUTICS INC.-US-REV-2024-000272

PATIENT

DRUGS (2)
  1. DAXIBOTULINUMTOXIN A-LANM [Suspect]
     Active Substance: DAXIBOTULINUMTOXIN A-LANM
     Indication: Skin wrinkling
     Dosage: 60 U- GLABELLAR AND FOREHEAD
     Route: 065
     Dates: start: 20240209
  2. DAXIBOTULINUMTOXIN A-LANM [Suspect]
     Active Substance: DAXIBOTULINUMTOXIN A-LANM
     Dosage: 56 UNITS - FOREHEAD
     Route: 065
     Dates: start: 20240419

REACTIONS (2)
  - Patient dissatisfaction with treatment [Unknown]
  - Off label use [Unknown]

NARRATIVE: CASE EVENT DATE: 20240209
